FAERS Safety Report 21820801 (Version 1)
Quarter: 2023Q1

REPORT INFORMATION
  Report Type: Spontaneous
  Country: US (occurrence: US)
  Receive Date: 20230105
  Receipt Date: 20230105
  Transmission Date: 20230418
  Serious: Yes (Other)
  Sender: FDA-Public Use
  Company Number: US-CADILA HEALTHCARE LIMITED-US-ZYDUS-086428

PATIENT

DRUGS (6)
  1. DOXORUBICIN [Suspect]
     Active Substance: DOXORUBICIN
     Indication: Burkitt^s lymphoma
     Dosage: FOR 6  MONTHS
     Route: 065
  2. CYCLOPHOSPHAMIDE [Suspect]
     Active Substance: CYCLOPHOSPHAMIDE
     Indication: Burkitt^s lymphoma
     Dosage: FOR 6  MONTHS
     Route: 065
  3. ETOPOSIDE [Suspect]
     Active Substance: ETOPOSIDE
     Indication: Burkitt^s lymphoma
     Dosage: FOR 6  MONTHS
     Route: 065
  4. PREDNISONE [Suspect]
     Active Substance: PREDNISONE
     Indication: Burkitt^s lymphoma
     Dosage: FOR 6  MONTHS
     Route: 065
  5. RITUXIMAB [Suspect]
     Active Substance: RITUXIMAB
     Indication: Burkitt^s lymphoma
     Dosage: FOR 6  MONTHS
     Route: 065
  6. VINCRISTINE [Suspect]
     Active Substance: VINCRISTINE
     Indication: Burkitt^s lymphoma
     Dosage: FOR 6  MONTHS
     Route: 065

REACTIONS (1)
  - Osteonecrosis [Unknown]
